FAERS Safety Report 5914432-3 (Version None)
Quarter: 2008Q4

REPORT INFORMATION
  Report Type: 
  Country: None (occurrence: None)
  Receive Date: 20081007
  Receipt Date: 20080925
  Transmission Date: 20090506
  Serious: Yes (Other)
  Sender: FDA-Public Use
  Company Number: 2008-03587

PATIENT
  Sex: 0

DRUGS (1)
  1. VELCADE [Suspect]
     Indication: MYELOFIBROSIS
     Dosage: 1.6 MG/M2 INTRAVENOUS
     Route: 042

REACTIONS (9)
  - ANAEMIA [None]
  - FATIGUE [None]
  - GASTROINTESTINAL DISORDER [None]
  - HYPONATRAEMIA [None]
  - MONOCYTOSIS [None]
  - OESOPHAGEAL VARICES HAEMORRHAGE [None]
  - PAIN [None]
  - PNEUMONITIS [None]
  - THROMBOCYTOPENIA [None]
